FAERS Safety Report 6439052-6 (Version None)
Quarter: 2009Q4

REPORT INFORMATION
  Report Type: 
  Country: None (occurrence: None)
  Receive Date: 20091111
  Receipt Date: 20091111
  Transmission Date: 20100525
  Serious: Yes (Other)
  Sender: FDA-Public Use
  Company Number: None

PATIENT
  Age: 43 Year
  Sex: Female
  Weight: 54.8852 kg

DRUGS (1)
  1. CELLCEPT [Suspect]
     Indication: MYASTHENIA GRAVIS
     Dosage: 500MG 2 TABLETS TWICE A DAY TWICE A DAY PO
     Route: 048
     Dates: start: 20060520, end: 20090630

REACTIONS (2)
  - BREAST CANCER FEMALE [None]
  - GINGIVAL HYPERPLASIA [None]
